FAERS Safety Report 6260600-3 (Version None)
Quarter: 2009Q3

REPORT INFORMATION
  Report Type: 
  Country: None (occurrence: None)
  Receive Date: 20090708
  Receipt Date: 20090629
  Transmission Date: 20100115
  Serious: Yes (Hospitalization)
  Sender: FDA-Public Use
  Company Number: JP-SANOFI-SYNTHELABO-A01200906769

PATIENT
  Sex: Female

DRUGS (5)
  1. FLUOROURACIL [Suspect]
     Indication: COLON CANCER METASTATIC
     Route: 040
  2. FLUOROURACIL [Suspect]
     Route: 041
  3. AVASTIN [Suspect]
     Indication: COLON CANCER METASTATIC
     Route: 041
  4. ELPLAT [Suspect]
     Indication: COLON CANCER METASTATIC
     Route: 041
  5. LEVOFOLINATE [Suspect]
     Indication: COLON CANCER METASTATIC

REACTIONS (5)
  - ABDOMINAL PAIN [None]
  - ABSCESS INTESTINAL [None]
  - ENTEROCUTANEOUS FISTULA [None]
  - MALAISE [None]
  - WHITE BLOOD CELL COUNT DECREASED [None]
